FAERS Safety Report 12700299 (Version 1)
Quarter: 2016Q3

REPORT INFORMATION
  Report Type: Spontaneous
  Country: US (occurrence: US)
  Receive Date: 20160830
  Receipt Date: 20160830
  Transmission Date: 20161109
  Serious: No
  Sender: FDA-Public Use
  Company Number: US-SA-2015SA148344

PATIENT
  Sex: Male

DRUGS (1)
  1. FABRAZYME [Suspect]
     Active Substance: AGALSIDASE BETA
     Indication: FABRY^S DISEASE
     Route: 041
     Dates: start: 201504

REACTIONS (4)
  - Headache [Unknown]
  - Chills [Unknown]
  - Disorientation [Unknown]
  - Lethargy [Unknown]

NARRATIVE: CASE EVENT DATE: 2015
